FAERS Safety Report 7645326-3 (Version None)
Quarter: 2011Q3

REPORT INFORMATION
  Report Type: 
  Country: None (occurrence: None)
  Receive Date: 20110729
  Receipt Date: 20110722
  Transmission Date: 20111222
  Serious: Yes (Other)
  Sender: FDA-Public Use
  Company Number: US-AMGEN-USASP2011037898

PATIENT
  Age: 58 Year
  Sex: Female

DRUGS (6)
  1. BIOTIN [Concomitant]
  2. CALCIUM ACETATE [Concomitant]
  3. PROLIA [Suspect]
     Indication: OSTEOPOROSIS POSTMENOPAUSAL
     Dosage: 60 MG, Q6MO
     Dates: start: 20110201
  4. VITAMIN D [Concomitant]
  5. VITAMIN C                          /00008001/ [Concomitant]
  6. METOPROLOL TARTRATE [Concomitant]

REACTIONS (1)
  - BONE LOSS [None]
